FAERS Safety Report 6286996-4 (Version None)
Quarter: 2009Q3

REPORT INFORMATION
  Report Type: 
  Country: None (occurrence: None)
  Receive Date: 20090728
  Receipt Date: 20090716
  Transmission Date: 20100115
  Serious: Yes (Death, Hospitalization)
  Sender: FDA-Public Use
  Company Number: JP-SANOFI-SYNTHELABO-F01200801494

PATIENT
  Sex: Male
  Weight: 75 kg

DRUGS (10)
  1. HERBESSER R [Concomitant]
     Indication: ANGINA UNSTABLE
     Route: 048
     Dates: start: 20080618, end: 20090315
  2. HEPARIN [Concomitant]
     Indication: ANGINA UNSTABLE
     Dosage: 15000 UNK
     Route: 042
     Dates: start: 20080618, end: 20080622
  3. ASPIRIN [Concomitant]
     Indication: ANGINA UNSTABLE
     Route: 048
     Dates: start: 20080618
  4. LIVALO [Suspect]
     Dosage: 2 MG
     Route: 048
     Dates: start: 20080725, end: 20080728
  5. GLIMICRON [Suspect]
     Dosage: 40 MG
     Route: 048
     Dates: start: 20080726, end: 20080728
  6. CLOPIDOGREL [Suspect]
     Indication: ACUTE CORONARY SYNDROME
     Dosage: MAINTENANCE DOSE
     Route: 048
     Dates: start: 20080618, end: 20090315
  7. CLOPIDOGREL [Suspect]
     Indication: ANGINA UNSTABLE
     Dosage: MAINTENANCE DOSE
     Route: 048
     Dates: start: 20080618, end: 20090315
  8. FRANDOL [Concomitant]
     Indication: ANGINA UNSTABLE
     Dosage: 40 MG
     Route: 050
     Dates: start: 20081219, end: 20090315
  9. NITRODERM [Concomitant]
     Indication: ANGINA UNSTABLE
     Dosage: 25 MG
     Route: 065
     Dates: start: 20080618, end: 20081218
  10. BLOPRESS [Concomitant]
     Dosage: 4 MG
     Route: 065
     Dates: start: 20080619, end: 20090315

REACTIONS (4)
  - ANGINA PECTORIS [None]
  - COMPLETED SUICIDE [None]
  - DIZZINESS [None]
  - NAUSEA [None]
